FAERS Safety Report 17498430 (Version 1)
Quarter: 2020Q1

REPORT INFORMATION
  Report Type: Spontaneous
  Country: NL (occurrence: NL)
  Receive Date: 20200304
  Receipt Date: 20200304
  Transmission Date: 20200409
  Serious: Yes (Life-Threatening)
  Sender: FDA-Public Use
  Company Number: NL-ALLERGAN-2009696US

PATIENT
  Sex: Male
  Weight: 3.1 kg

DRUGS (1)
  1. CITALOPRAM HYDROBROMIDE - BP [Suspect]
     Active Substance: CITALOPRAM HYDROBROMIDE
     Indication: DEPRESSION
     Dosage: 20 MG, QD
     Route: 065
     Dates: start: 2019

REACTIONS (2)
  - Pregnancy [Unknown]
  - Newborn persistent pulmonary hypertension [Recovering/Resolving]

NARRATIVE: CASE EVENT DATE: 20191206
